FAERS Safety Report 11119686 (Version 1)
Quarter: 2015Q2

REPORT INFORMATION
  Report Type: Spontaneous
  Country: None (occurrence: None)
  Receive Date: 20150515
  Receipt Date: 20150515
  Transmission Date: 20150821
  Serious: Yes (Other)
  Sender: FDA-Public Use
  Company Number: None

PATIENT
  Age: 50 Year
  Sex: Female
  Weight: 61.24 kg

DRUGS (2)
  1. L. THIAMINE [Concomitant]
  2. LEVAQUIN [Suspect]
     Active Substance: LEVOFLOXACIN
     Indication: PHARYNGITIS STREPTOCOCCAL
     Dosage: 1 PILL EVERY 24 HOURS
     Route: 048
     Dates: start: 20150124

REACTIONS (3)
  - Restlessness [None]
  - Anxiety [None]
  - Panic reaction [None]

NARRATIVE: CASE EVENT DATE: 20150124
